FAERS Safety Report 6467248-6 (Version None)
Quarter: 2009Q4

REPORT INFORMATION
  Report Type: 
  Country: None (occurrence: None)
  Receive Date: 20091130
  Receipt Date: 20091112
  Transmission Date: 20100525
  Serious: Yes (Death)
  Sender: FDA-Public Use
  Company Number: 2009AP004576

PATIENT
  Age: 66 Year
  Sex: Male

DRUGS (12)
  1. PREDNISOLONE [Suspect]
     Indication: ANGIOCENTRIC LYMPHOMA
  2. PREDNISOLONE [Suspect]
     Indication: CHEMOTHERAPY
  3. RITUXIMAB [Suspect]
     Indication: ANGIOCENTRIC LYMPHOMA
  4. RITUXIMAB [Suspect]
     Indication: CHEMOTHERAPY
  5. CYCLOPHOSPHAMIDE [Suspect]
     Indication: ANGIOCENTRIC LYMPHOMA
  6. CYCLOPHOSPHAMIDE [Suspect]
     Indication: CHEMOTHERAPY
  7. VINCRISTINE [Suspect]
     Indication: ANGIOCENTRIC LYMPHOMA
  8. VINCRISTINE [Suspect]
     Indication: CHEMOTHERAPY
  9. DOXORUBICIN [Suspect]
     Indication: ANGIOCENTRIC LYMPHOMA
  10. DOXORUBICIN [Suspect]
     Indication: CHEMOTHERAPY
  11. CORTICOSTEROIDS [Suspect]
     Indication: ANGIOCENTRIC LYMPHOMA
  12. CORTICOSTEROIDS [Suspect]
     Indication: CHEMOTHERAPY

REACTIONS (5)
  - DIFFUSE ALVEOLAR DAMAGE [None]
  - NO THERAPEUTIC RESPONSE [None]
  - PANCYTOPENIA [None]
  - RENAL FAILURE ACUTE [None]
  - SEPTIC SHOCK [None]
